FAERS Safety Report 18701561 (Version 1)
Quarter: 2021Q1

REPORT INFORMATION
  Report Type: Spontaneous
  Country: FR (occurrence: FR)
  Receive Date: 20210105
  Receipt Date: 20210105
  Transmission Date: 20210419
  Serious: Yes (Death)
  Sender: FDA-Public Use
  Company Number: FR-JNJFOC-20201254727

PATIENT
  Age: 92 Year
  Sex: Male

DRUGS (2)
  1. RISPERDAL [Suspect]
     Active Substance: RISPERIDONE
     Indication: ABNORMAL BEHAVIOUR
  2. RISPERDAL [Suspect]
     Active Substance: RISPERIDONE
     Indication: CONFUSIONAL STATE
     Route: 065

REACTIONS (4)
  - Death [Fatal]
  - Agitation [Unknown]
  - Abnormal behaviour [Unknown]
  - Speech disorder [Unknown]
